FAERS Safety Report 13707371 (Version 1)
Quarter: 2017Q2

REPORT INFORMATION
  Report Type: Spontaneous
  Country: US (occurrence: US)
  Receive Date: 20170630
  Receipt Date: 20170630
  Transmission Date: 20170830
  Serious: Yes (Disabling, Other)
  Sender: FDA-Public Use
  Company Number: US-SAOL THERAPEUTICS-2017SAO01103

PATIENT
  Sex: Female
  Weight: 54.42 kg

DRUGS (3)
  1. MARCAINE [Suspect]
     Active Substance: BUPIVACAINE HYDROCHLORIDE
     Route: 037
  2. BACLOFEN. [Suspect]
     Active Substance: BACLOFEN
     Indication: PAIN
     Route: 037
  3. FENTANYL. [Suspect]
     Active Substance: FENTANYL
     Route: 037

REACTIONS (6)
  - Leg amputation [Recovered/Resolved with Sequelae]
  - Device damage [Recovered/Resolved]
  - Drug withdrawal syndrome [Recovered/Resolved]
  - Pain [Recovered/Resolved]
  - Device infusion issue [Recovered/Resolved]
  - Off label use [Unknown]
